FAERS Safety Report 24184241 (Version 1)
Quarter: 2024Q3

REPORT INFORMATION
  Report Type: Spontaneous
  Country: US (occurrence: None)
  Receive Date: 20240806
  Receipt Date: 20240806
  Transmission Date: 20241017
  Serious: Yes (Hospitalization)
  Sender: Public
  Company Number: None

PATIENT
  Age: 19 Year
  Sex: Female
  Weight: 66.22 kg

DRUGS (2)
  1. VYEPTI [Suspect]
     Active Substance: EPTINEZUMAB\EPTINEZUMAB-JJMR
     Indication: Migraine
     Dosage: ?100 MG EVERY 3 MONTHS INTRAVENOUS DRIP
     Route: 041
     Dates: start: 20240802, end: 20240802
  2. Vyepti 100mg [Concomitant]
     Dates: start: 20240802, end: 20240802

REACTIONS (3)
  - Blood pressure decreased [None]
  - Infusion related reaction [None]
  - Pharyngeal swelling [None]

NARRATIVE: CASE EVENT DATE: 20240802
